FAERS Safety Report 9369332 (Version 1)
Quarter: 2013Q2

REPORT INFORMATION
  Report Type: Spontaneous
  Country: US (occurrence: US)
  Receive Date: 20130626
  Receipt Date: 20130626
  Transmission Date: 20140414
  Serious: Yes (Hospitalization)
  Sender: FDA-Public Use
  Company Number: US-BAYER-2013-078294

PATIENT
  Age: 21 Year
  Sex: Female

DRUGS (3)
  1. YASMIN [Suspect]
  2. CEPHALEXIN [Concomitant]
     Dosage: UNK
     Dates: start: 20050314
  3. MOMETASONE [Concomitant]
     Dosage: UNK
     Dates: start: 20050314

REACTIONS (2)
  - Deep vein thrombosis [None]
  - Pulmonary embolism [None]
